FAERS Safety Report 7632309-2 (Version None)
Quarter: 2011Q3

REPORT INFORMATION
  Report Type: 
  Country: None (occurrence: None)
  Receive Date: 20110725
  Receipt Date: 20100723
  Transmission Date: 20111222
  Serious: No
  Sender: FDA-Public Use
  Company Number: US-BRISTOL-MYERS SQUIBB COMPANY-15207590

PATIENT
  Age: 58 Year
  Sex: Male

DRUGS (4)
  1. HYDROCODONE BITARTRATE [Concomitant]
     Dosage: HYDROCODONE 5/5
  2. LISINOPRIL [Concomitant]
  3. COUMADIN [Suspect]
     Dosage: RECEIVED NEW REFIL ON 13-JUN-2010
  4. PARAFON FORTE [Concomitant]
     Indication: MUSCLE RELAXANT THERAPY

REACTIONS (1)
  - INTERNATIONAL NORMALISED RATIO FLUCTUATION [None]
